FAERS Safety Report 14788871 (Version 1)
Quarter: 2018Q2

REPORT INFORMATION
  Report Type: Spontaneous
  Country: PL (occurrence: PL)
  Receive Date: 20180423
  Receipt Date: 20180423
  Transmission Date: 20180711
  Serious: Yes (Other)
  Sender: FDA-Public Use
  Company Number: PL-WEST-WARD PHARMACEUTICALS CORP.-PL-H14001-18-03287

PATIENT
  Sex: Male

DRUGS (1)
  1. AMOKSIKLAV [Suspect]
     Active Substance: AMOXICILLIN\CLAVULANATE POTASSIUM
     Indication: PRODUCT USED FOR UNKNOWN INDICATION
     Dosage: UNK ()
     Route: 065

REACTIONS (2)
  - Cough [Unknown]
  - Pneumonia [Unknown]
